FAERS Safety Report 17763875 (Version 2)
Quarter: 2020Q3

REPORT INFORMATION
  Report Type: Spontaneous
  Country: US (occurrence: US)
  Receive Date: 20200510
  Receipt Date: 20200710
  Transmission Date: 20201102
  Serious: No
  Sender: FDA-Public Use
  Company Number: US-ASTRAZENECA-2020SE59988

PATIENT
  Sex: Female

DRUGS (1)
  1. PULMICORT FLEXHALER [Suspect]
     Active Substance: BUDESONIDE
     Indication: PLEURISY
     Route: 055

REACTIONS (7)
  - Intentional device misuse [Unknown]
  - Illness [Unknown]
  - Feeling abnormal [Unknown]
  - Device malfunction [Unknown]
  - Chest discomfort [Unknown]
  - Product use issue [Unknown]
  - Product dose omission issue [Unknown]
